FAERS Safety Report 23788512 (Version 1)
Quarter: 2024Q2

REPORT INFORMATION
  Report Type: Spontaneous
  Country: US (occurrence: US)
  Receive Date: 20240426
  Receipt Date: 20240426
  Transmission Date: 20240716
  Serious: Yes (Other)
  Sender: FDA-Public Use
  Company Number: US-FreseniusKabi-FK202406498

PATIENT
  Sex: Male

DRUGS (3)
  1. SMOFLIPID [Suspect]
     Active Substance: FISH OIL\MEDIUM-CHAIN TRIGLYCERIDES\OLIVE OIL\SOYBEAN OIL
     Indication: Product used for unknown indication
     Dosage: FORM OF ADMIN: LIPID INJECTABLE EMULSION?DOSAGE: 3GM/KG/D
  2. OMEGAVEN [Suspect]
     Active Substance: FISH OIL
     Indication: Fatty acid deficiency
     Dosage: FORM OF ADMIN: INJECTABLE EMULSION
  3. INTRALIPID [Suspect]
     Active Substance: EGG PHOSPHOLIPIDS\GLYCERIN\SOYBEAN OIL
     Indication: Fatty acid deficiency
     Dosage: FORM/ROUTE OF ADMIN: I.V. FAT EMULSION?DOSAGE: 0.5 GM/KG/D

REACTIONS (3)
  - Parenteral nutrition associated liver disease [Not Recovered/Not Resolved]
  - Condition aggravated [Not Recovered/Not Resolved]
  - Off label use [Unknown]
